FAERS Safety Report 25384767 (Version 1)
Quarter: 2025Q2

REPORT INFORMATION
  Report Type: Spontaneous
  Country: US (occurrence: None)
  Receive Date: 20250530
  Receipt Date: 20250530
  Transmission Date: 20250716
  Serious: No
  Sender: FDA-CTU
  Company Number: None

PATIENT
  Sex: Male

DRUGS (7)
  1. GAMMAGARD [Suspect]
     Active Substance: HUMAN IMMUNOGLOBULIN G
     Indication: Paroxysmal nocturnal haemoglobinuria
     Dosage: OTHER FREQUENCY : EVERY 4 WEEKS;?
     Route: 042
  2. INF SET MINILOC 22GX.75 [Concomitant]
  3. GAMMAGARD LIQUID [Concomitant]
     Active Substance: HUMAN IMMUNOGLOBULIN G
  4. HEPARIN L/L FLUSH SYRINGE [Concomitant]
  5. SOD CHLOR POS STERILE F (10ML) [Concomitant]
  6. SODIUM CHLOR (50ML/BAG) [Concomitant]
  7. SODIUM CHLOR POSIFLUSH (10ML) [Concomitant]

REACTIONS (3)
  - Pyrexia [None]
  - Vomiting [None]
  - Headache [None]
